FAERS Safety Report 9206530 (Version 1)
Quarter: 2013Q2

REPORT INFORMATION
  Report Type: Spontaneous
  Country: US (occurrence: None)
  Receive Date: 20130401
  Receipt Date: 20130401
  Transmission Date: 20140414
  Serious: No
  Sender: FDA-Public Use
  Company Number: None

PATIENT
  Age: 35 Year
  Sex: Female

DRUGS (1)
  1. TEMODAR 250MG MERCK [Suspect]
     Route: 048
     Dates: start: 20120905, end: 20130326

REACTIONS (3)
  - Epistaxis [None]
  - Dysgeusia [None]
  - Dysgeusia [None]
